FAERS Safety Report 6434813-1 (Version None)
Quarter: 2009Q4

REPORT INFORMATION
  Report Type: 
  Country: None (occurrence: None)
  Receive Date: 20091109
  Receipt Date: 20091109
  Transmission Date: 20100525
  Serious: Yes (Life-Threatening, Hospitalization)
  Sender: FDA-Public Use
  Company Number: None

PATIENT
  Age: 79 Year
  Sex: Female
  Weight: 44.4525 kg

DRUGS (1)
  1. ATROVENT [Suspect]
     Indication: VASOMOTOR RHINITIS
     Dosage: 2 SPRAYS IN EACH NOSTRIL 3 TIMES A DAY NASAL
     Route: 045
     Dates: start: 20081004, end: 20091006

REACTIONS (2)
  - DEHYDRATION [None]
  - HAEMORRHAGE [None]
